FAERS Safety Report 6741051-1 (Version None)
Quarter: 2010Q2

REPORT INFORMATION
  Report Type: 
  Country: None (occurrence: None)
  Receive Date: 20100526
  Receipt Date: 20100512
  Transmission Date: 20101027
  Serious: Yes (Hospitalization)
  Sender: FDA-Public Use
  Company Number: US-JNJFOC-20100505097

PATIENT
  Age: 73 Year
  Sex: Male
  Weight: 80.74 kg

DRUGS (6)
  1. EXTRA STRENGTH TYLENOL [Suspect]
     Route: 048
  2. EXTRA STRENGTH TYLENOL [Suspect]
     Indication: HEADACHE
     Route: 048
  3. BYSTOLIC [Concomitant]
  4. CHERATUSSIN [Concomitant]
  5. CARAFATE [Concomitant]
  6. PANTOPRAZOLE [Concomitant]

REACTIONS (3)
  - BLOOD SODIUM DECREASED [None]
  - CHEST PAIN [None]
  - PRODUCT QUALITY ISSUE [None]
